FAERS Safety Report 7336139-0 (Version None)
Quarter: 2011Q1

REPORT INFORMATION
  Report Type: 
  Country: None (occurrence: None)
  Receive Date: 20110307
  Receipt Date: 20110121
  Transmission Date: 20110831
  Serious: Yes (Death)
  Sender: FDA-Public Use
  Company Number: US-BAXTER-2008BH001304

PATIENT
  Age: 66 Year
  Sex: Female
  Weight: 70 kg

DRUGS (13)
  1. PREDNISONE [Concomitant]
     Indication: PRODUCT USED FOR UNKNOWN INDICATION
     Route: 048
  2. NEXIUM [Concomitant]
     Indication: GASTRIC ULCER
     Route: 048
  3. DIGOXIN [Concomitant]
     Indication: CARDIAC DISORDER
     Route: 048
  4. HEPARIN SODIUM INJECTION [Suspect]
     Route: 033
     Dates: end: 20080101
  5. PERCOCET [Concomitant]
     Indication: PRODUCT USED FOR UNKNOWN INDICATION
     Route: 048
  6. DIANEAL [Concomitant]
     Indication: RENAL FAILURE CHRONIC
     Route: 033
  7. HEPARIN SODIUM INJECTION [Suspect]
     Route: 065
     Dates: end: 20081015
  8. ALLOPURINOL [Concomitant]
     Indication: GOUT
     Route: 048
  9. HEPARIN SODIUM INJECTION [Suspect]
     Route: 033
     Dates: end: 20080101
  10. PHOSLO [Concomitant]
     Indication: RENAL FAILURE CHRONIC
     Route: 048
  11. HEPARIN SODIUM INJECTION [Suspect]
     Indication: PROPHYLAXIS
     Route: 033
     Dates: start: 20070801
  12. ROCALTROL [Concomitant]
     Indication: RENAL DISORDER
     Route: 048
  13. ASPIRIN [Concomitant]
     Indication: PRODUCT USED FOR UNKNOWN INDICATION
     Route: 048

REACTIONS (11)
  - GASTRIC ULCER [None]
  - FAECES DISCOLOURED [None]
  - DIZZINESS [None]
  - DEHYDRATION [None]
  - DEATH [None]
  - ORAL CANDIDIASIS [None]
  - ASTHENIA [None]
  - VOMITING [None]
  - BLOOD PRESSURE DECREASED [None]
  - RETCHING [None]
  - DECREASED APPETITE [None]
